FAERS Safety Report 7557928-3 (Version None)
Quarter: 2011Q2

REPORT INFORMATION
  Report Type: 
  Country: None (occurrence: None)
  Receive Date: 20110620
  Receipt Date: 20110610
  Transmission Date: 20111010
  Serious: Yes (Hospitalization)
  Sender: FDA-Public Use
  Company Number: B0721843A

PATIENT
  Age: 44 Year
  Sex: Male

DRUGS (6)
  1. ENTECAVIR [Concomitant]
     Dates: start: 20110422
  2. HEPSERA [Suspect]
     Dosage: 10MG PER DAY
     Route: 048
     Dates: start: 20080101, end: 20110522
  3. CHINESE MEDICINE [Concomitant]
     Dates: start: 20050101
  4. HEPTODIN [Suspect]
     Dosage: .1G PER DAY
     Route: 048
     Dates: start: 20110315, end: 20110422
  5. HEPTODIN [Suspect]
     Dosage: .1G PER DAY
     Route: 048
     Dates: start: 20050801, end: 20090209
  6. URSODIOL [Concomitant]
     Dates: start: 20050101

REACTIONS (7)
  - ASTHENIA [None]
  - BLOOD CREATINE PHOSPHOKINASE INCREASED [None]
  - DYSPHAGIA [None]
  - DECREASED APPETITE [None]
  - TRANSAMINASES INCREASED [None]
  - RHABDOMYOLYSIS [None]
  - CACHEXIA [None]
